FAERS Safety Report 13107550 (Version 1)
Quarter: 2017Q1

REPORT INFORMATION
  Report Type: Spontaneous
  Country: US (occurrence: US)
  Receive Date: 20170112
  Receipt Date: 20170112
  Transmission Date: 20170428
  Serious: Yes (Death, Hospitalization, Other)
  Sender: FDA-Public Use
  Company Number: US-APOTEX-2017AP005547

PATIENT
  Age: 47 Year
  Sex: Male

DRUGS (1)
  1. AMLODIPINE BESYLATE. [Suspect]
     Active Substance: AMLODIPINE BESYLATE
     Indication: PRODUCT USED FOR UNKNOWN INDICATION
     Dosage: UNK
     Route: 048

REACTIONS (12)
  - Arteriosclerosis [Fatal]
  - Completed suicide [Fatal]
  - Hypotension [Fatal]
  - Cardiac arrest [Fatal]
  - Brain oedema [Fatal]
  - Hyperglycaemia [Fatal]
  - Coronary artery disease [Fatal]
  - Pulmonary oedema [Fatal]
  - Emphysema [Fatal]
  - Toxicity to various agents [Fatal]
  - Anuria [Fatal]
  - Cardiomegaly [Fatal]
